FAERS Safety Report 16226198 (Version 1)
Quarter: 2019Q2

REPORT INFORMATION
  Report Type: Report from Study
  Country: None (occurrence: TR)
  Receive Date: 20190423
  Receipt Date: 20190423
  Transmission Date: 20190711
  Serious: Yes (Hospitalization, Other)
  Sender: FDA-Public Use
  Company Number: TR-ABBVIE-19S-161-2751217-00

PATIENT
  Age: 70 Year
  Sex: Female
  Weight: 47 kg

DRUGS (5)
  1. PEXOLA [Concomitant]
     Active Substance: PRAMIPEXOLE DIHYDROCHLORIDE
     Indication: PARKINSON^S DISEASE
     Route: 048
  2. DUODOPA [Suspect]
     Active Substance: CARBIDOPA\LEVODOPA
     Indication: PARKINSON^S DISEASE
     Dosage: MD (ML): 2,50 CD (ML): 1,70 ED (ML):1,00
     Route: 050
     Dates: start: 20190417, end: 20190418
  3. PAXERA [Concomitant]
     Active Substance: PAROXETINE HYDROCHLORIDE
     Indication: PARKINSON^S DISEASE
     Route: 048
  4. OMEPROL [Concomitant]
     Active Substance: OMEPRAZOLE
     Indication: PROPHYLAXIS
     Route: 048
  5. DUODOPA [Suspect]
     Active Substance: CARBIDOPA\LEVODOPA
     Dosage: MD (ML): 2,00 CD (ML): 1,50 ED (ML): 1,00
     Route: 050
     Dates: start: 20190419

REACTIONS (2)
  - Perforation [Recovered/Resolved]
  - Abdominal pain [Recovered/Resolved]

NARRATIVE: CASE EVENT DATE: 20190417
